FAERS Safety Report 8853472 (Version 2)
Quarter: 2013Q1

REPORT INFORMATION
  Report Type: Report from Study
  Country: PL (occurrence: PL)
  Receive Date: 20121022
  Receipt Date: 20130131
  Transmission Date: 20140127
  Serious: Yes (Hospitalization)
  Sender: FDA-Public Use
  Company Number: PL-CELGENEUS-129-C5013-12101288

PATIENT
  Sex: Male
  Weight: 76 kg

DRUGS (5)
  1. CC-5013 [Suspect]
     Indication: PLASMA CELL MYELOMA
     Dosage: 10 MILLIGRAM
     Route: 048
     Dates: end: 20120926
  2. CC-5013 [Suspect]
     Route: 048
     Dates: start: 20121009
  3. CC-5013 [Suspect]
     Indication: PLASMA CELL MYELOMA
     Route: 048
  4. MELPHALAN [Suspect]
     Indication: PLASMA CELL MYELOMA
     Route: 065
  5. PREDNISONE [Suspect]
     Indication: PLASMA CELL MYELOMA
     Route: 065

REACTIONS (1)
  - Atrial flutter [Recovered/Resolved with Sequelae]
